FAERS Safety Report 8586237-9 (Version None)
Quarter: 2012Q3

REPORT INFORMATION
  Report Type: 
  Country: None (occurrence: None)
  Receive Date: 20120810
  Receipt Date: 20120807
  Transmission Date: 20120928
  Serious: Yes (Hospitalization, Other)
  Sender: FDA-Public Use
  Company Number: US-ROCHE-1090700

PATIENT
  Sex: Female
  Weight: 82 kg

DRUGS (6)
  1. SINGULAIR [Concomitant]
     Indication: ASTHMA
     Dosage: 1 TABLET
     Route: 048
     Dates: start: 20031218
  2. XOLAIR [Suspect]
     Indication: ASTHMA
     Route: 058
     Dates: start: 20031204
  3. FLUTICASONE PROPIONATE [Concomitant]
     Indication: ASTHMA
     Dosage: 1 PUFF
     Route: 048
     Dates: start: 20011030
  4. DIOVAN [Concomitant]
     Indication: HYPERTENSION
     Route: 048
  5. INSULIN [Concomitant]
     Indication: DIABETES MELLITUS
  6. LISINOPRIL [Concomitant]
     Indication: HYPERTENSION
     Route: 048

REACTIONS (1)
  - TRANSIENT ISCHAEMIC ATTACK [None]
